FAERS Safety Report 7516930-8 (Version None)
Quarter: 2011Q2

REPORT INFORMATION
  Report Type: 
  Country: None (occurrence: None)
  Receive Date: 20110601
  Receipt Date: 20110526
  Transmission Date: 20111010
  Serious: Yes (Other)
  Sender: FDA-Public Use
  Company Number: BR-ABBOTT-11P-020-0728426-00

PATIENT
  Sex: Female
  Weight: 30 kg

DRUGS (6)
  1. METHOTREXATE [Concomitant]
     Indication: JUVENILE ARTHRITIS
     Route: 048
  2. HUMIRA [Suspect]
     Indication: RHEUMATOID ARTHRITIS
     Route: 058
     Dates: start: 20110429, end: 20110429
  3. HUMIRA [Suspect]
     Indication: JUVENILE ARTHRITIS
  4. PREDNISONE [Concomitant]
     Indication: ANTIINFLAMMATORY THERAPY
     Route: 048
  5. OMEPRAZOLE [Concomitant]
     Indication: GASTRIC DISORDER
     Route: 048
  6. FOLIC ACID [Concomitant]
     Indication: ANAEMIA PROPHYLAXIS
     Route: 048

REACTIONS (13)
  - INFLUENZA [None]
  - DECREASED APPETITE [None]
  - GAIT DISTURBANCE [None]
  - MALNUTRITION-INFLAMMATION-ATHEROSCLEROSIS SYNDROME [None]
  - CONFUSIONAL STATE [None]
  - ILL-DEFINED DISORDER [None]
  - VOMITING [None]
  - WEIGHT DECREASED [None]
  - HALLUCINATION [None]
  - PAIN [None]
  - VERTIGO [None]
  - ASTHENIA [None]
  - FATIGUE [None]
